FAERS Safety Report 17793763 (Version 1)
Quarter: 2020Q2

REPORT INFORMATION
  Report Type: Spontaneous
  Country: US (occurrence: US)
  Receive Date: 20200515
  Receipt Date: 20200515
  Transmission Date: 20200714
  Serious: Yes (Hospitalization, Other)
  Sender: FDA-Public Use
  Company Number: US-UPSHER-SMITH LABORATORIES, LLC-2020USL00236

PATIENT
  Sex: Female

DRUGS (2)
  1. AMIODARONE HYDROCHLORIDE. [Suspect]
     Active Substance: AMIODARONE HYDROCHLORIDE
     Dosage: UNK
     Route: 048
     Dates: start: 201308, end: 2015
  2. AMIODARONE HYDROCHLORIDE. [Suspect]
     Active Substance: AMIODARONE HYDROCHLORIDE
     Indication: ATRIAL FIBRILLATION
     Dosage: UNK
     Route: 048
     Dates: start: 201111, end: 201303

REACTIONS (28)
  - Contusion [Unknown]
  - Depression [Unknown]
  - Irritability [Unknown]
  - Keratopathy [Unknown]
  - Cardiomegaly [Unknown]
  - Renal artery arteriosclerosis [Unknown]
  - Pneumonitis [Unknown]
  - Renal failure [Unknown]
  - Visual impairment [Unknown]
  - Corneal dystrophy [Unknown]
  - Pulmonary fibrosis [Unknown]
  - Fatigue [Unknown]
  - Cataract [Unknown]
  - Blindness [Unknown]
  - Restlessness [Unknown]
  - Pulmonary hypertension [Unknown]
  - Haemorrhage [Unknown]
  - Alopecia [Unknown]
  - Respiratory failure [Unknown]
  - Nervousness [Unknown]
  - Weight increased [Unknown]
  - Unevaluable event [Unknown]
  - Pneumonia [Unknown]
  - Toxicity to various agents [Unknown]
  - Drug ineffective for unapproved indication [Recovered/Resolved]
  - Pleural effusion [Unknown]
  - Disturbance in attention [Unknown]
  - Asthenia [Unknown]

NARRATIVE: CASE EVENT DATE: 201101
